FAERS Safety Report 8901004 (Version 3)
Quarter: 2014Q2

REPORT INFORMATION
  Report Type: Spontaneous
  Country: IT (occurrence: IT)
  Receive Date: 20121109
  Receipt Date: 20131018
  Transmission Date: 20141212
  Serious: Yes (Hospitalization)
  Sender: FDA-Public Use
  Company Number: IT-PFIZER INC-2012272464

PATIENT
  Age: 71 Year
  Sex: Male

DRUGS (2)
  1. NORVASC [Suspect]
     Indication: HYPERTENSION
     Dosage: 10 MG, 1X/DAY
     Route: 048
     Dates: start: 20120101
  2. ATENOLOL [Suspect]
     Indication: HYPERTENSION
     Dosage: 100 MG, 1X/DAY
     Route: 048
     Dates: start: 20120101

REACTIONS (1)
  - Tongue oedema [Unknown]
